FAERS Safety Report 9672043 (Version 2)
Quarter: 2013Q4

REPORT INFORMATION
  Report Type: Spontaneous
  Country: AU (occurrence: AU)
  Receive Date: 20131106
  Receipt Date: 20131219
  Transmission Date: 20140711
  Serious: Yes (Hospitalization)
  Sender: FDA-Public Use
  Company Number: AU-GLAXOSMITHKLINE-B0939566A

PATIENT
  Sex: Female

DRUGS (4)
  1. REVOLADE [Suspect]
     Indication: PRODUCT USED FOR UNKNOWN INDICATION
     Dosage: 75MG PER DAY
  2. INTRAGAM [Concomitant]
     Indication: THROMBOCYTOPENIA
     Route: 065
     Dates: start: 20131017, end: 20131017
  3. VINCRISTINE [Concomitant]
     Indication: THROMBOCYTOPENIA
     Route: 042
     Dates: start: 20131017, end: 20131017
  4. CYCLOSPORIN [Concomitant]
     Indication: THROMBOCYTOPENIA
     Dosage: 200MG TWICE PER DAY
     Route: 065
     Dates: start: 20130924, end: 20131114

REACTIONS (2)
  - Cerebrovascular accident [Recovered/Resolved]
  - Drug ineffective [Recovered/Resolved]
